FAERS Safety Report 4949116-1 (Version None)
Quarter: 2006Q1

REPORT INFORMATION
  Report Type: 
  Country: None (occurrence: None)
  Receive Date: 20060315
  Receipt Date: 20060302
  Transmission Date: 20060701
  Serious: Yes (Death)
  Sender: FDA-Public Use
  Company Number: 13563

PATIENT
  Age: 60 Year
  Sex: Male

DRUGS (1)
  1. PACLITAXEL [Suspect]
     Indication: PROSTATE CANCER METASTATIC
     Dosage: 100 MG/M2 ONCE

REACTIONS (17)
  - ANURIA [None]
  - BLOOD LACTATE DEHYDROGENASE INCREASED [None]
  - BLOOD PHOSPHORUS INCREASED [None]
  - BLOOD POTASSIUM DECREASED [None]
  - BLOOD POTASSIUM INCREASED [None]
  - BLOOD URIC ACID INCREASED [None]
  - CALCIUM IONISED INCREASED [None]
  - CONDITION AGGRAVATED [None]
  - FEBRILE NEUTROPENIA [None]
  - HAEMODIALYSIS [None]
  - HYPOTENSION [None]
  - PLATELET COUNT DECREASED [None]
  - PROTHROMBIN TIME PROLONGED [None]
  - RENAL FAILURE [None]
  - TUMOUR LYSIS SYNDROME [None]
  - VESICOURETERIC REFLUX [None]
  - WHITE BLOOD CELL COUNT DECREASED [None]
